FAERS Safety Report 17519602 (Version 2)
Quarter: 2022Q2

REPORT INFORMATION
  Report Type: Spontaneous
  Country: CA (occurrence: CA)
  Receive Date: 20200309
  Receipt Date: 20220630
  Transmission Date: 20220720
  Serious: Yes (Death, Life-Threatening, Other)
  Sender: FDA-Public Use
  Company Number: CA-NAPPMUNDI-CAN-2020-0010699

PATIENT
  Age: 10 Month
  Sex: Female

DRUGS (1)
  1. MORPHINE SULFATE [Suspect]
     Active Substance: MORPHINE SULFATE
     Indication: Product used for unknown indication
     Dosage: UNK
     Route: 065

REACTIONS (7)
  - Pulmonary congestion [Fatal]
  - Dyspnoea [Fatal]
  - Pneumonia [Fatal]
  - Overdose [Fatal]
  - Product use issue [Fatal]
  - Cyanosis [Fatal]
  - Apnoea [Fatal]
